FAERS Safety Report 10218567 (Version 2)
Quarter: 2014Q2

REPORT INFORMATION
  Report Type: Spontaneous
  Country: US (occurrence: US)
  Receive Date: 20140605
  Receipt Date: 20140619
  Transmission Date: 20141212
  Serious: Yes (Other)
  Sender: FDA-Public Use
  Company Number: US-AMGEN-USASP2014040369

PATIENT
  Age: 90 Year
  Sex: Male
  Weight: 80.73 kg

DRUGS (1)
  1. NPLATE [Suspect]
     Indication: IMMUNE THROMBOCYTOPENIC PURPURA
     Dosage: 1.5 MUG/KG, QWK
     Route: 058
     Dates: start: 20120315

REACTIONS (3)
  - Rash generalised [Not Recovered/Not Resolved]
  - Iron deficiency anaemia [Unknown]
  - Rash [Unknown]
